FAERS Safety Report 4806712-X (Version None)
Quarter: 2005Q4

REPORT INFORMATION
  Report Type: 
  Country: None (occurrence: None)
  Receive Date: 20051019
  Receipt Date: 20040127
  Transmission Date: 20060501
  Serious: Yes (Disabling)
  Sender: FDA-Public Use
  Company Number: 203782

PATIENT
  Age: 72 Year
  Sex: Male

DRUGS (6)
  1. ACTILYSE(ALTEPLASE) PWDR + SOLVENT,INFUSION SOLN, 100MG [Suspect]
     Indication: MYOCARDIAL INFARCTION
     Dosage: 10 MG, IV BOLUS
     Route: 040
  2. ASPIRIN [Suspect]
     Indication: MYOCARDIAL INFARCTION
  3. AMLODIPINE BESYLATE (AMLODIPINE BESYLATE) [Concomitant]
  4. HEPARIN [Suspect]
     Indication: MYOCARDIAL INFARCTION
  5. SIMVASTATIN [Concomitant]
  6. ASPIRIN [Concomitant]

REACTIONS (12)
  - CONJUNCTIVAL HAEMORRHAGE [None]
  - CORNEAL DISORDER [None]
  - CORONARY ARTERY DISEASE [None]
  - EXOPHTHALMOS [None]
  - EYE HAEMORRHAGE [None]
  - EYE MOVEMENT DISORDER [None]
  - EYE SWELLING [None]
  - NAUSEA [None]
  - OCULAR DISCOMFORT [None]
  - PUPILLARY REFLEX IMPAIRED [None]
  - VISUAL ACUITY REDUCED [None]
  - VOMITING [None]
